FAERS Safety Report 7435831-7 (Version None)
Quarter: 2011Q2

REPORT INFORMATION
  Report Type: 
  Country: None (occurrence: None)
  Receive Date: 20110425
  Receipt Date: 20110412
  Transmission Date: 20111010
  Serious: Yes (Other)
  Sender: FDA-Public Use
  Company Number: CA-ELI_LILLY_AND_COMPANY-CA201104003462

PATIENT
  Sex: Female

DRUGS (21)
  1. ZYPREXA [Suspect]
     Indication: BIPOLAR DISORDER
     Dosage: 2.5 MG, UNK
  2. ZYPREXA ZYDIS [Suspect]
     Indication: BIPOLAR DISORDER
     Dosage: 5 MG, QD
  3. ZYPREXA ZYDIS [Suspect]
     Dosage: 20 MG, EACH EVENING
  4. ZYPREXA ZYDIS [Suspect]
     Dosage: 25 MG, QD
  5. LAMICTAL [Concomitant]
  6. ALTACE [Concomitant]
  7. OXYCET [Concomitant]
  8. RISPERIDONE [Concomitant]
  9. ZYPREXA [Suspect]
     Dosage: 10 MG, QD
  10. IMURAN [Concomitant]
  11. OXYCONTIN [Concomitant]
  12. ZYPREXA [Suspect]
     Dosage: 7.5 MG, QD
  13. HYDROCHLOROTHIAZIDE [Concomitant]
  14. DICLOFENAC [Concomitant]
  15. ZYPREXA ZYDIS [Suspect]
     Dosage: 10 MG, QD
  16. PERCOCET [Concomitant]
  17. ZYPREXA [Suspect]
     Dosage: 2.5 MG, BID
  18. EFFEXOR [Concomitant]
  19. DOMPERIDONE [Concomitant]
  20. CLONAZEPAM [Concomitant]
  21. PRILOSEC [Concomitant]

REACTIONS (7)
  - MUSCLE DISORDER [None]
  - DIABETES MELLITUS [None]
  - WEIGHT INCREASED [None]
  - PURPURA [None]
  - OVERDOSE [None]
  - ARTHROPATHY [None]
  - RENAL IMPAIRMENT [None]
